FAERS Safety Report 16084101 (Version 1)
Quarter: 2019Q2

REPORT INFORMATION
  Report Type: Spontaneous
  Country: US (occurrence: US)
  Receive Date: 20190316
  Receipt Date: 20190316
  Transmission Date: 20190711
  Serious: Yes (Life-Threatening, Other)
  Sender: FDA-Public Use
  Company Number: None

PATIENT
  Age: 71 Year
  Sex: Male
  Weight: 126 kg

DRUGS (3)
  1. LOSARTAN POTASSIUM. [Suspect]
     Active Substance: LOSARTAN POTASSIUM
     Indication: HYPERTENSION
     Dosage: ?          QUANTITY:90 TABLET(S);OTHER ROUTE:BY MOUTH?
     Dates: start: 20181220, end: 20190315
  2. METOPROLOL 25 MG 3/DAY [Concomitant]
  3. GABAPENTIN 1/EVERY OTHER DAY [Concomitant]

REACTIONS (4)
  - Pain in jaw [None]
  - Chest pain [None]
  - Angina pectoris [None]
  - Neck pain [None]

NARRATIVE: CASE EVENT DATE: 20181223
